FAERS Safety Report 4431327-5 (Version None)
Quarter: 2004Q3

REPORT INFORMATION
  Report Type: 
  Country: None (occurrence: None)
  Receive Date: 20040820
  Receipt Date: 20040820
  Transmission Date: 20050211
  Serious: Yes (Other)
  Sender: FDA-Public Use
  Company Number: None

PATIENT
  Age: 29 Year
  Sex: Male
  Weight: 86.1834 kg

DRUGS (1)
  1. EFFEXOR [Suspect]
     Indication: ANXIETY
     Dosage: DAILY
     Dates: start: 20030201, end: 20040301

REACTIONS (7)
  - AGGRESSION [None]
  - ANGER [None]
  - DRUG WITHDRAWAL SYNDROME [None]
  - HOSTILITY [None]
  - IMPAIRED WORK ABILITY [None]
  - MOOD SWINGS [None]
  - TREATMENT NONCOMPLIANCE [None]
